FAERS Safety Report 6078259-7 (Version None)
Quarter: 2009Q1

REPORT INFORMATION
  Report Type: 
  Country: None (occurrence: None)
  Receive Date: 20090213
  Receipt Date: 20090209
  Transmission Date: 20090719
  Serious: Yes (Death, Hospitalization, Other)
  Sender: FDA-Public Use
  Company Number: GR-PFIZER INC-2007042042

PATIENT
  Sex: Male

DRUGS (9)
  1. PREGABALIN [Suspect]
     Indication: NEURALGIA
     Route: 048
     Dates: start: 20070508
  2. PENSORDIL [Concomitant]
     Route: 048
  3. TREBON N [Concomitant]
     Route: 048
  4. SERETIDE DISKUS [Concomitant]
     Route: 055
  5. BESIX [Concomitant]
     Route: 048
  6. EVION [Concomitant]
     Route: 048
  7. CELEBREX [Concomitant]
     Route: 048
  8. DURAGESIC-100 [Concomitant]
     Route: 062
  9. PARIET [Concomitant]
     Route: 048

REACTIONS (4)
  - FATIGUE [None]
  - LUNG CANCER METASTATIC [None]
  - TREMOR [None]
  - WALKING DISABILITY [None]
